FAERS Safety Report 10073174 (Version 2)
Quarter: 2014Q2

REPORT INFORMATION
  Report Type: Spontaneous
  Country: RU (occurrence: RU)
  Receive Date: 20140411
  Receipt Date: 20140527
  Transmission Date: 20141212
  Serious: Yes (Hospitalization)
  Sender: FDA-Public Use
  Company Number: RU-ASTRAZENECA-2014SE25344

PATIENT
  Age: 28040 Day
  Sex: Female

DRUGS (11)
  1. METOPROLOL SUCCINATE [Suspect]
     Route: 048
  2. DILTIAZEM [Suspect]
     Indication: HYPERTENSION
     Route: 048
     Dates: end: 20140404
  3. DILTIAZEM [Suspect]
     Indication: HYPERTENSION
     Route: 048
     Dates: start: 20140407
  4. AZD6140 CODE NOT BROKEN [Suspect]
     Indication: CORONARY ARTERY DISEASE
     Route: 048
     Dates: start: 20110823, end: 20120429
  5. AZD6140 CODE NOT BROKEN [Suspect]
     Indication: CORONARY ARTERY DISEASE
     Route: 048
     Dates: start: 20120528, end: 20140404
  6. AZD6140 CODE NOT BROKEN [Suspect]
     Indication: CORONARY ARTERY DISEASE
     Route: 048
     Dates: start: 20140406
  7. LOSAP [Concomitant]
     Indication: HYPERTENSION
     Route: 048
  8. LIPRIMAR [Concomitant]
     Indication: HYPERCHOLESTEROLAEMIA
     Route: 048
  9. DIUVER [Concomitant]
     Indication: CARDIAC FAILURE CHRONIC
     Route: 048
  10. HYPOTIAZID [Concomitant]
     Indication: HYPERTENSION
     Route: 048
  11. ASA [Concomitant]
     Route: 048

REACTIONS (1)
  - Sinus arrest [Recovered/Resolved]
